FAERS Safety Report 14529023 (Version 2)
Quarter: 2024Q1

REPORT INFORMATION
  Report Type: Spontaneous
  Country: US (occurrence: US)
  Receive Date: 20180214
  Receipt Date: 20240326
  Transmission Date: 20240410
  Serious: No
  Sender: FDA-Public Use
  Company Number: US-PFIZER INC-2018063157

PATIENT
  Age: 54 Year
  Sex: Female
  Weight: 77.098 kg

DRUGS (1)
  1. PRISTIQ EXTENDED-RELEASE [Suspect]
     Active Substance: DESVENLAFAXINE SUCCINATE
     Dosage: UNK

REACTIONS (3)
  - Personality change [Unknown]
  - Eye infection [Unknown]
  - Laryngitis [Unknown]

NARRATIVE: CASE EVENT DATE: 20180202
